FAERS Safety Report 10100554 (Version 2)
Quarter: 2014Q2

REPORT INFORMATION
  Report Type: Spontaneous
  Country: JP (occurrence: JP)
  Receive Date: 20140423
  Receipt Date: 20140509
  Transmission Date: 20141212
  Serious: Yes (Other)
  Sender: FDA-Public Use
  Company Number: JP-GLAXOSMITHKLINE-B0987236A

PATIENT
  Age: 57 Year
  Sex: Female

DRUGS (4)
  1. ZANTAC [Suspect]
     Indication: PREMEDICATION
     Route: 042
     Dates: start: 20140410, end: 20140410
  2. SEISHOKU [Concomitant]
     Route: 042
     Dates: start: 20140410
  3. DEXART [Concomitant]
     Route: 042
     Dates: start: 20140410
  4. PACLITAXEL [Concomitant]
     Route: 042

REACTIONS (2)
  - Anaphylactic shock [Recovering/Resolving]
  - Blood pressure decreased [Unknown]
